FAERS Safety Report 9397802 (Version 1)
Quarter: 2013Q3

REPORT INFORMATION
  Report Type: Spontaneous
  Country: ES (occurrence: ES)
  Receive Date: 20130712
  Receipt Date: 20130712
  Transmission Date: 20140515
  Serious: Yes (Hospitalization)
  Sender: FDA-Public Use
  Company Number: ES-BAYER-2013-082112

PATIENT
  Age: 80 Year
  Sex: Male

DRUGS (7)
  1. ADIRO 100 [Suspect]
     Indication: MYOCARDIAL ISCHAEMIA
     Dosage: 100 MG, QD
     Route: 048
     Dates: start: 20100901, end: 20121028
  2. SINTROM [Interacting]
     Indication: ATRIAL FIBRILLATION
     Route: 048
     Dates: start: 2008, end: 20121028
  3. JANUVIA [Concomitant]
     Indication: TYPE 2 DIABETES MELLITUS
     Dosage: 100 MG, TID
     Route: 048
     Dates: start: 20111017, end: 20121028
  4. OMEPRAZOL [Concomitant]
     Indication: PROPHYLAXIS AGAINST GASTROINTESTINAL ULCER
     Dosage: 20 MG, QD
     Route: 048
     Dates: start: 20120817, end: 20121028
  5. SEGURIL [Concomitant]
     Indication: CARDIAC FAILURE CONGESTIVE
     Dosage: 40 MG, QD
     Route: 048
     Dates: start: 20120312, end: 20121028
  6. CARDYL [Concomitant]
     Indication: DYSLIPIDAEMIA
     Route: 048
     Dates: start: 201207, end: 20121028
  7. ATARAX [Concomitant]
     Indication: DYSHIDROTIC ECZEMA
     Dosage: 25 MG, QD
     Route: 048
     Dates: start: 20120620, end: 20121028

REACTIONS (2)
  - Coagulopathy [Recovered/Resolved]
  - Anaemia [Recovered/Resolved]
